FAERS Safety Report 7903653-6 (Version None)
Quarter: 2011Q4

REPORT INFORMATION
  Report Type: 
  Country: None (occurrence: None)
  Receive Date: 20111109
  Receipt Date: 20111031
  Transmission Date: 20120403
  Serious: Yes (Death, Life-Threatening, Hospitalization)
  Sender: FDA-Public Use
  Company Number: JP-AMGEN-JPNCT2011051268

PATIENT
  Age: 76 Year
  Sex: Male
  Weight: 50 kg

DRUGS (3)
  1. DECADRON [Concomitant]
     Dosage: UNK UNK, QD
     Route: 041
     Dates: start: 20110907, end: 20110907
  2. DECADRON [Concomitant]
     Route: 041
     Dates: start: 20110907, end: 20110907
  3. PANITUMUMAB [Suspect]
     Indication: COLORECTAL CANCER
     Dosage: UNK, Q2WK
     Route: 041
     Dates: start: 20110907, end: 20110907

REACTIONS (7)
  - INTERSTITIAL LUNG DISEASE [None]
  - PYREXIA [None]
  - BLOOD ALBUMIN DECREASED [None]
  - HYPOPHAGIA [None]
  - DISORIENTATION [None]
  - MALAISE [None]
  - CACHEXIA [None]
